FAERS Safety Report 8773594 (Version 4)
Quarter: 2013Q2

REPORT INFORMATION
  Report Type: Report from Study
  Country: JP (occurrence: JP)
  Receive Date: 20120907
  Receipt Date: 20130502
  Transmission Date: 20140414
  Serious: Yes (Other)
  Sender: FDA-Public Use
  Company Number: JP-VERTEX PHARMACEUTICAL INC.-2012-020643

PATIENT
  Age: 44 Year
  Sex: Male

DRUGS (17)
  1. VX-950 (TELAPREVIR) [Suspect]
     Indication: CHRONIC HEPATITIS C
     Dosage: 2250 MG, QD
     Route: 048
     Dates: start: 20120314, end: 20120605
  2. PEGINTERFERON ALFA-2B [Suspect]
     Indication: CHRONIC HEPATITIS C
     Dosage: 1.5 ?G/KG, QW
     Route: 058
     Dates: start: 20120314, end: 20120627
  3. PEGINTERFERON ALFA-2B [Suspect]
     Dosage: 1.2 ?G/KG, QW
     Route: 058
     Dates: start: 20120704, end: 20120718
  4. PEGINTERFERON ALFA-2B [Suspect]
     Dosage: 1.5 ?G/KG, QW
     Route: 058
     Dates: start: 20120725, end: 20120822
  5. RIBAVIRIN [Suspect]
     Indication: CHRONIC HEPATITIS C
     Dosage: 800 MG, QD
     Route: 048
     Dates: start: 20120314, end: 20120501
  6. RIBAVIRIN [Suspect]
     Dosage: 600 MG, QD
     Route: 048
     Dates: start: 20120502, end: 20120605
  7. RIBAVIRIN [Suspect]
     Dosage: 400 MG, QD
     Route: 048
     Dates: start: 20120606, end: 20120626
  8. RIBAVIRIN [Suspect]
     Dosage: 600 MG, QD
     Route: 048
     Dates: start: 20120627, end: 20120724
  9. RIBAVIRIN [Suspect]
     Dosage: 800 MG, QD
     Route: 048
     Dates: start: 20120725, end: 20120828
  10. CONIEL [Concomitant]
     Dosage: 4 MG, QD
     Route: 048
  11. ARTIST [Concomitant]
     Dosage: 20 MG, QD
     Route: 048
  12. DEPAS [Concomitant]
     Dosage: 0.5 MG, QD
     Route: 048
  13. GASTER D [Concomitant]
     Dosage: 40 MG, QD
     Route: 048
     Dates: end: 20120315
  14. GASTER D [Concomitant]
     Dosage: 40 MG, QD
     Route: 048
  15. SILECE [Concomitant]
     Dosage: 2 MG, QD
     Route: 048
  16. RIZABEN [Concomitant]
     Dosage: 0.5 %, QD
     Route: 047
  17. URSO [Concomitant]
     Dosage: 600 MG, QD
     Route: 048

REACTIONS (1)
  - Neutrophil count decreased [Recovered/Resolved]
